FAERS Safety Report 9743373 (Version 1)
Quarter: 2013Q4

REPORT INFORMATION
  Report Type: Spontaneous
  Country: IT (occurrence: IT)
  Receive Date: 20131210
  Receipt Date: 20131210
  Transmission Date: 20140711
  Serious: Yes (Other)
  Sender: FDA-Public Use
  Company Number: PHHY2013IT141093

PATIENT
  Sex: Female

DRUGS (2)
  1. HALOPERIDOL [Suspect]
     Dosage: 10 MG, TID
     Route: 048
  2. HALOPERIDOL [Suspect]
     Dosage: 50 MG, QW2
     Route: 030

REACTIONS (6)
  - Hypothermia [Unknown]
  - Psychosomatic disease [Unknown]
  - Fatigue [Unknown]
  - Mood swings [Unknown]
  - Anosognosia [Unknown]
  - Drug ineffective [Unknown]
